FAERS Safety Report 11242508 (Version 3)
Quarter: 2015Q3

REPORT INFORMATION
  Report Type: Spontaneous
  Country: US (occurrence: US)
  Receive Date: 20150707
  Receipt Date: 20150915
  Transmission Date: 20151125
  Serious: No
  Sender: FDA-Public Use
  Company Number: US-009507513-1506USA012415

PATIENT
  Age: 31 Year
  Sex: Female
  Weight: 82.86 kg

DRUGS (1)
  1. IMPLANON [Suspect]
     Active Substance: ETONOGESTREL
     Indication: CONTRACEPTION
     Dosage: DOSE/FREQUENCY: 3 YEAR IMPLANT
     Route: 059
     Dates: start: 20150526

REACTIONS (1)
  - Acne [Unknown]

NARRATIVE: CASE EVENT DATE: 201506
